FAERS Safety Report 16905503 (Version 3)
Quarter: 2019Q4

REPORT INFORMATION
  Report Type: Report from Study
  Country: CZ (occurrence: CZ)
  Receive Date: 20191010
  Receipt Date: 20191101
  Transmission Date: 20200122
  Serious: Yes (Hospitalization)
  Sender: FDA-Public Use
  Company Number: CZ-JNJFOC-20191002481

PATIENT
  Age: 50 Year
  Sex: Female
  Weight: 93 kg

DRUGS (1)
  1. ESKETAMINE [Suspect]
     Active Substance: ESKETAMINE
     Indication: DEPRESSION
     Dates: start: 20180208

REACTIONS (1)
  - Urethral stenosis [Recovered/Resolved]

NARRATIVE: CASE EVENT DATE: 20190919
